FAERS Safety Report 4534929-0 (Version None)
Quarter: 2004Q4

REPORT INFORMATION
  Report Type: 
  Country: None (occurrence: None)
  Receive Date: 20041222
  Receipt Date: 20040820
  Transmission Date: 20050328
  Serious: No
  Sender: FDA-Public Use
  Company Number: US-BRISTOL-MYERS SQUIBB COMPANY-12679056

PATIENT
  Age: 77 Year
  Sex: Female
  Weight: 77 kg

DRUGS (3)
  1. PRAVACHOL [Suspect]
     Indication: BLOOD CHOLESTEROL INCREASED
     Route: 048
     Dates: start: 20040801, end: 20040101
  2. VITAMIN C [Concomitant]
  3. ASPIRIN [Concomitant]

REACTIONS (1)
  - RASH [None]
